FAERS Safety Report 24183038 (Version 3)
Quarter: 2024Q3

REPORT INFORMATION
  Report Type: Spontaneous
  Country: US (occurrence: US)
  Receive Date: 20240807
  Receipt Date: 20240920
  Transmission Date: 20241017
  Serious: No
  Sender: AMGEN
  Company Number: US-AMGEN-USASP2024156479

PATIENT
  Age: 55 Year
  Sex: Male
  Weight: 174.33 kg

DRUGS (31)
  1. REPATHA [Suspect]
     Active Substance: EVOLOCUMAB
     Indication: Blood triglycerides increased
     Dosage: 140 MILLIGRAM PER MILLILITRE, Q2WK
     Route: 058
     Dates: start: 2018, end: 2024
  2. REPATHA [Suspect]
     Active Substance: EVOLOCUMAB
     Indication: Arteriosclerosis
  3. VASCEPA [Concomitant]
     Active Substance: ICOSAPENT ETHYL
     Dosage: 1 GRAM, BID
     Route: 048
  4. NEXLETOL [Concomitant]
     Active Substance: BEMPEDOIC ACID
     Dosage: UNK
  5. VITAMIN B12 [Concomitant]
     Active Substance: CYANOCOBALAMIN
     Dosage: 1000 MICROGRAM, QD, (1 TABLET)
     Route: 048
  6. AMLODIPINE BESYLATE [Concomitant]
     Active Substance: AMLODIPINE BESYLATE
     Dosage: 10 MILLIGRAM, QD, (1 TABLET)
     Route: 048
  7. HYDROCHLOROTHIAZIDE\LOSARTAN POTASSIUM [Concomitant]
     Active Substance: HYDROCHLOROTHIAZIDE\LOSARTAN POTASSIUM
     Dosage: UNK UNK, QD, (100-25 MILLIGRAM)
     Route: 048
  8. TRULICITY [Concomitant]
     Active Substance: DULAGLUTIDE
     Dosage: 0.75 MILLIGRAM/0.5 MILLILITRE, QWK
     Route: 058
  9. ESCITALOPRAM OXALATE [Concomitant]
     Active Substance: ESCITALOPRAM OXALATE
     Dosage: 20 MILLIGRAM, QD
     Route: 048
  10. GABAPENTIN [Concomitant]
     Active Substance: GABAPENTIN
     Dosage: 400 MILLIGRAM, TID
     Route: 048
  11. FUROSEMIDE [Concomitant]
     Active Substance: FUROSEMIDE
     Dosage: 80 MILLIGRAM, QD
     Route: 048
  12. FIASP [Concomitant]
     Active Substance: INSULIN ASPART
     Dosage: 17 UNIT, WITH EACH MEAL (100 UNIT/MILLILITRE)
  13. TRESIBA [Concomitant]
     Active Substance: INSULIN DEGLUDEC
     Dosage: 45 UNIT, EVERY NIGHT, (100 UNIT/MILLILITRE)
     Route: 058
  14. JARDIANCE [Concomitant]
     Active Substance: EMPAGLIFLOZIN
     Dosage: 10 MILLIGRAM, QD
     Route: 048
  15. ASPIRIN [Concomitant]
     Active Substance: ASPIRIN
     Dosage: 81 MILLIGRAM, QD
     Route: 048
  16. LATANOPROST [Concomitant]
     Active Substance: LATANOPROST
     Dosage: 1 DROP, QD,  IN BOTH EYES IN EVENING
     Route: 047
  17. TIMOLOL MALEATE [Concomitant]
     Active Substance: TIMOLOL MALEATE
     Dosage: 1 DROP, QD, IN BOTH EYES
     Route: 047
  18. VITAMIN D3 [Concomitant]
     Active Substance: CHOLECALCIFEROL
     Dosage: 50 MICROGRAM, QD, (2000 UT)
     Route: 048
  19. POTASSIUM CHLORIDE [Concomitant]
     Active Substance: POTASSIUM CHLORIDE
     Dosage: 1 DOSAGE FORM, QD, (WITH FOOD)
     Route: 048
  20. DIVALPROEX SODIUM [Concomitant]
     Active Substance: DIVALPROEX SODIUM
     Dosage: 500 MILLIGRAM, QD, (3 TABLETS)
     Route: 048
  21. LEVOTHYROXINE SODIUM [Concomitant]
     Active Substance: LEVOTHYROXINE SODIUM
     Dosage: 25 MICROGRAM, QD
     Route: 048
  22. METOPROLOL SUCCINATE [Concomitant]
     Active Substance: METOPROLOL SUCCINATE
     Dosage: 50 MILLIGRAM
     Route: 065
  23. TAMSULOSIN HYDROCHLORIDE [Concomitant]
     Active Substance: TAMSULOSIN HYDROCHLORIDE
     Dosage: 0.4 MILLIGRAM, QD
     Route: 048
  24. OZEMPIC [Concomitant]
     Active Substance: SEMAGLUTIDE
     Dosage: 0.5 MILLIGRAM, QWK, (0.25 OR 0.5 MG/DOSE) 2 MG/3ML SOLUTION PEN-INJECTOR
     Route: 058
  25. GLUCAGON [Concomitant]
     Active Substance: GLUCAGON\GLUCAGON HYDROCHLORIDE\WATER
     Dosage: UNK, (1 MG/0,2ML)
     Route: 058
  26. BRIMONIDINE TARTRATE [Concomitant]
     Active Substance: BRIMONIDINE TARTRATE
     Dosage: 1 DROP, BID, INTO AFFECTED EYE
     Route: 047
  27. BEMPEDOIC ACID [Concomitant]
     Active Substance: BEMPEDOIC ACID
     Dosage: 180 MILLIGRAM, QD
     Route: 048
  28. TRAMADOL HCL [Concomitant]
     Active Substance: TRAMADOL HYDROCHLORIDE
     Indication: Pain
     Dosage: 50 MILLIGRAM, Q6H, (2 TABLET)
     Route: 048
  29. PRALUENT [Concomitant]
     Active Substance: ALIROCUMAB
     Dosage: 150 MILLIGRAM PER MILLILITRE
     Route: 058
  30. COLESEVELAM HYDROCHLORIDE [Concomitant]
     Active Substance: COLESEVELAM HYDROCHLORIDE
     Dosage: 62.5 MILLIGRAM, BID, (3 TABLET DAILY WITH MEAL)
  31. TRAZODONE HCL [Concomitant]
     Active Substance: TRAZODONE HYDROCHLORIDE
     Dosage: 100 MILLIGRAM, QD (AT BED TIME)
     Route: 048

REACTIONS (5)
  - Swollen tongue [Recovered/Resolved]
  - Oedema peripheral [Unknown]
  - Musculoskeletal chest pain [Unknown]
  - Drug intolerance [Unknown]
  - Blood creatine phosphokinase increased [Unknown]

NARRATIVE: CASE EVENT DATE: 20240101
